FAERS Safety Report 8925557 (Version 2)
Quarter: 2013Q3

REPORT INFORMATION
  Report Type: Spontaneous
  Country: US (occurrence: US)
  Receive Date: 20121126
  Receipt Date: 20130823
  Transmission Date: 20140515
  Serious: Yes (Death, Other)
  Sender: FDA-Public Use
  Company Number: CHPA2012US023979

PATIENT
  Age: 62 Year
  Sex: Male

DRUGS (3)
  1. MAALOX ANTACID TABLETS - UNKNOWN [Suspect]
     Indication: DYSPEPSIA
     Dosage: UNK, PRN
     Route: 048
     Dates: start: 200107, end: 2009
  2. BENEFIBER UNKNOWN [Suspect]
     Dosage: UNK, UNK
  3. COUMADIN ^BOOTS^ [Concomitant]
     Indication: ANTICOAGULANT THERAPY
     Dosage: UNK, UNK
     Dates: start: 200107, end: 2009

REACTIONS (2)
  - Sepsis [Fatal]
  - Cerebral haemorrhage [Recovered/Resolved]
